FAERS Safety Report 4347660-1 (Version None)
Quarter: 2004Q2

REPORT INFORMATION
  Report Type: 
  Country: None (occurrence: None)
  Receive Date: 20040422
  Receipt Date: 20040409
  Transmission Date: 20050107
  Serious: Yes (Hospitalization, Disabling, Other)
  Sender: FDA-Public Use
  Company Number: US-JNJFOC-20040402829

PATIENT
  Age: 72 Year
  Sex: Female
  Weight: 70.7611 kg

DRUGS (6)
  1. DITROPAN XL [Suspect]
     Indication: URINARY INCONTINENCE
     Dosage: 10 MG, 1 IN 1 DAY
     Dates: start: 20031208
  2. DITROPAN XL [Suspect]
     Indication: URINARY INCONTINENCE
     Dosage: 10 MG, 1 IN 1 DAY
     Dates: start: 20031226
  3. ASPIRIN [Concomitant]
  4. METAGLIP (GLIPIZIDE) [Concomitant]
  5. LIPITOR [Concomitant]
  6. NORVASC (AMLODIPINE BESILATE) TABLETS [Concomitant]

REACTIONS (12)
  - ABDOMINAL MASS [None]
  - AMNESIA [None]
  - BACTERIAL INFECTION [None]
  - CEREBRAL ATROPHY [None]
  - CHOLELITHIASIS [None]
  - CONFUSIONAL STATE [None]
  - DEMENTIA [None]
  - IATROGENIC INJURY [None]
  - KIDNEY INFECTION [None]
  - LARGE INTESTINE PERFORATION [None]
  - MENTAL STATUS CHANGES [None]
  - OBSTRUCTIVE UROPATHY [None]
